FAERS Safety Report 10205543 (Version 1)
Quarter: 2014Q2

REPORT INFORMATION
  Report Type: Spontaneous
  Country: GR (occurrence: GR)
  Receive Date: 20140529
  Receipt Date: 20140529
  Transmission Date: 20141212
  Serious: Yes (Hospitalization, Other)
  Sender: FDA-Public Use
  Company Number: GR-WATSON-2014-11566

PATIENT
  Age: 62 Year
  Sex: Male

DRUGS (1)
  1. METRONIDAZOLE (UNKNOWN) [Suspect]
     Indication: GASTROENTERITIS
     Dosage: 1500 MG, DAILY
     Route: 065

REACTIONS (1)
  - Toxic encephalopathy [Recovered/Resolved]
